FAERS Safety Report 4373001-X (Version None)
Quarter: 2004Q2

REPORT INFORMATION
  Report Type: 
  Country: None (occurrence: None)
  Receive Date: 20040603
  Receipt Date: 20040517
  Transmission Date: 20050107
  Serious: Yes (Hospitalization, Other)
  Sender: FDA-Public Use
  Company Number: USA040567811

PATIENT
  Sex: Female

DRUGS (1)
  1. FORTEO [Suspect]
     Dates: start: 20040301

REACTIONS (2)
  - PHARMACEUTICAL PRODUCT COMPLAINT [None]
  - VASCULAR BYPASS GRAFT [None]
